FAERS Safety Report 21541098 (Version 7)
Quarter: 2023Q1

REPORT INFORMATION
  Report Type: Spontaneous
  Country: IT (occurrence: IT)
  Receive Date: 20221102
  Receipt Date: 20230113
  Transmission Date: 20230418
  Serious: Yes (Hospitalization, Other)
  Sender: FDA-Public Use
  Company Number: None

PATIENT
  Age: 78 Year
  Sex: Male

DRUGS (37)
  1. TRIAZOLAM [Suspect]
     Active Substance: TRIAZOLAM
     Indication: Product used for unknown indication
     Dosage: 3MG (3 MG)
     Route: 065
  2. TRIAZOLAM [Suspect]
     Active Substance: TRIAZOLAM
     Dosage: 0.25 MG, QD
     Route: 065
  3. TRIAZOLAM [Suspect]
     Active Substance: TRIAZOLAM
     Dosage: 0.25 MG,QD (0.25 MG, QD)
     Route: 065
  4. RAMIPRIL [Suspect]
     Active Substance: RAMIPRIL
     Indication: Product used for unknown indication
     Dosage: 3MG (3 MG)
     Route: 065
  5. RAMIPRIL [Suspect]
     Active Substance: RAMIPRIL
     Dosage: 10 MG, QD (10 MILLIGRAM QD)
     Route: 065
  6. RAMIPRIL [Suspect]
     Active Substance: RAMIPRIL
     Dosage: 10 MG,QD (10 MG, QD)
     Route: 065
  7. AMLODIPINE BESYLATE [Suspect]
     Active Substance: AMLODIPINE BESYLATE
     Indication: Product used for unknown indication
     Dosage: 5 MG,QD (5 MG, QD)
     Route: 065
  8. AMLODIPINE BESYLATE [Suspect]
     Active Substance: AMLODIPINE BESYLATE
     Dosage: 3 MG
     Route: 065
  9. AMLODIPINE BESYLATE [Suspect]
     Active Substance: AMLODIPINE BESYLATE
     Dosage: 3MG (3 MG)
     Route: 065
  10. APIXABAN [Suspect]
     Active Substance: APIXABAN
     Indication: Cerebrovascular accident prophylaxis
     Dosage: 10 MG, QD
     Route: 065
  11. APIXABAN [Suspect]
     Active Substance: APIXABAN
     Dosage: 3 MG (003 MILLIGRAM)
     Route: 065
  12. APIXABAN [Suspect]
     Active Substance: APIXABAN
     Dosage: 10 UNK (10 MG)
     Route: 065
  13. DOXAZOSIN MESYLATE [Suspect]
     Active Substance: DOXAZOSIN MESYLATE
     Indication: Product used for unknown indication
     Dosage: 2 MG,QD (2 MG, QD)
     Route: 065
  14. DOXAZOSIN MESYLATE [Suspect]
     Active Substance: DOXAZOSIN MESYLATE
     Dosage: 3 MG
     Route: 065
  15. DOXAZOSIN MESYLATE [Suspect]
     Active Substance: DOXAZOSIN MESYLATE
     Dosage: 3MG (3 MG)
     Route: 065
  16. METOPROLOL [Suspect]
     Active Substance: METOPROLOL
     Indication: Cerebrovascular accident
     Dosage: 3 MG, QD
     Route: 065
  17. METOPROLOL [Suspect]
     Active Substance: METOPROLOL
     Dosage: 150 MG, QD (Q24H)
     Route: 065
  18. LASIX [Suspect]
     Active Substance: FUROSEMIDE
     Indication: Product used for unknown indication
     Dosage: 4 DOSAGE FORM,QD (4 DF, QD)
     Route: 065
  19. LASIX [Suspect]
     Active Substance: FUROSEMIDE
     Dosage: 32 DF
     Route: 065
  20. LASIX [Suspect]
     Active Substance: FUROSEMIDE
     Dosage: 32DOSAGE FORM (32 DF)
     Route: 065
  21. LASIX [Suspect]
     Active Substance: FUROSEMIDE
     Route: 065
  22. HALCION [Suspect]
     Active Substance: TRIAZOLAM
     Indication: Product used for unknown indication
     Dosage: 0.25 MG, QD (0.25 MILLIGRAM, QD)
     Route: 065
  23. HALCION [Suspect]
     Active Substance: TRIAZOLAM
     Dosage: 3 MILLIGRAM (003 MILLIGRAM, UNK)
     Route: 065
  24. HALCION [Suspect]
     Active Substance: TRIAZOLAM
     Dosage: .25 MG
     Route: 065
  25. NORVASC [Suspect]
     Active Substance: AMLODIPINE BESYLATE
     Indication: Product used for unknown indication
     Dosage: 5 MG,QD (5 MILLIGRAM, QD)
     Route: 065
  26. NORVASC [Suspect]
     Active Substance: AMLODIPINE BESYLATE
     Dosage: 3 MILLIGRAM (003 MILLIGRAM, UNK)
     Route: 065
  27. NORVASC [Suspect]
     Active Substance: AMLODIPINE BESYLATE
     Dosage: 5 MG
     Route: 065
  28. CARDURA [Suspect]
     Active Substance: DOXAZOSIN MESYLATE
     Indication: Product used for unknown indication
     Dosage: 2 MG, QD (2 MILLIGRAM, QD)
     Route: 065
  29. CARDURA [Suspect]
     Active Substance: DOXAZOSIN MESYLATE
     Dosage: 3 MILLIGRAM 9003 MILLIGRAM, UNK)
     Route: 065
  30. CARDURA [Suspect]
     Active Substance: DOXAZOSIN MESYLATE
     Dosage: 2 MG
     Route: 065
  31. ATORVASTATIN [Concomitant]
     Active Substance: ATORVASTATIN
     Indication: Product used for unknown indication
     Dosage: 40 MG, Q24H (QD) (3 MILLIGRAM (003 MILLIGRAM, UNK)
     Route: 065
  32. ATORVASTATIN [Concomitant]
     Active Substance: ATORVASTATIN
     Dosage: 3 MG, QD
     Route: 065
  33. ATORVASTATIN [Concomitant]
     Active Substance: ATORVASTATIN
     Dosage: 40 MG,QD (40 MG, QD)
     Route: 065
  34. ATORVASTATIN [Concomitant]
     Active Substance: ATORVASTATIN
     Dosage: 3 MG,QD (3 MG, QD)
     Route: 065
  35. ELIQUIS [Concomitant]
     Active Substance: APIXABAN
     Indication: Product used for unknown indication
     Dosage: 10 MG,QD (10 MG, QD)
     Route: 065
  36. LUVION [Concomitant]
     Indication: Product used for unknown indication
     Dosage: 3 MG, QD
     Route: 065
  37. LUVION [Concomitant]
     Dosage: 50 MG, Q24H (50 MILLIGRAM, QD)
     Route: 065

REACTIONS (2)
  - Loss of consciousness [Not Recovered/Not Resolved]
  - Orthostatic hypotension [Not Recovered/Not Resolved]

NARRATIVE: CASE EVENT DATE: 20220918
